FAERS Safety Report 14469723 (Version 1)
Quarter: 2018Q1

REPORT INFORMATION
  Report Type: Report from Study
  Country: PE (occurrence: PE)
  Receive Date: 20180131
  Receipt Date: 20180131
  Transmission Date: 20180509
  Serious: Yes (Other)
  Sender: FDA-Public Use
  Company Number: PE-JNJFOC-20180136975

PATIENT
  Age: 59 Year
  Sex: Female

DRUGS (1)
  1. SIMPONI [Suspect]
     Active Substance: GOLIMUMAB
     Indication: RHEUMATOID ARTHRITIS
     Route: 058
     Dates: start: 20180124

REACTIONS (2)
  - Dry throat [Unknown]
  - Conjunctivitis [Recovered/Resolved]

NARRATIVE: CASE EVENT DATE: 201801
